FAERS Safety Report 20868759 (Version 1)
Quarter: 2022Q2

REPORT INFORMATION
  Report Type: Spontaneous
  Country: US (occurrence: US)
  Receive Date: 20220524
  Receipt Date: 20220524
  Transmission Date: 20220721
  Serious: No
  Sender: FDA-Public Use
  Company Number: US-PFIZER INC-202200676558

PATIENT
  Age: 70 Year
  Sex: Female

DRUGS (1)
  1. ACCUPRIL [Suspect]
     Active Substance: QUINAPRIL HYDROCHLORIDE
     Indication: Hypertension
     Dosage: 20 MG, 1X/DAY
     Route: 048

REACTIONS (5)
  - Recalled product administered [Unknown]
  - Headache [Recovering/Resolving]
  - Muscular weakness [Recovering/Resolving]
  - Pruritus [Recovering/Resolving]
  - Dry skin [Recovering/Resolving]
